FAERS Safety Report 9215206 (Version 2)
Quarter: 2013Q2

REPORT INFORMATION
  Report Type: Spontaneous
  Country: US (occurrence: US)
  Receive Date: 20130405
  Receipt Date: 20130513
  Transmission Date: 20140414
  Serious: No
  Sender: FDA-Public Use
  Company Number: US-ASTRAZENECA-2013SE19589

PATIENT
  Sex: Female

DRUGS (3)
  1. SYMBICORT PMDI [Suspect]
     Dosage: 160 MCG AS REQUIRED
     Route: 055
     Dates: start: 201111
  2. SYMBICORT PMDI [Suspect]
     Dosage: 2 PUFFS TWO TIMES A DAY
     Route: 055
  3. SYMBICORT PMDI [Suspect]
     Dosage: 80/4.5 MCG, 2 PUFFS AS REQUIRED
     Route: 055
     Dates: start: 20130320

REACTIONS (2)
  - Chest discomfort [Unknown]
  - Off label use [Unknown]
